FAERS Safety Report 23695921 (Version 1)
Quarter: 2024Q2

REPORT INFORMATION
  Report Type: Spontaneous
  Country: PL (occurrence: PL)
  Receive Date: 20240402
  Receipt Date: 20240402
  Transmission Date: 20240716
  Serious: Yes (Death, Hospitalization, Other)
  Sender: FDA-Public Use
  Company Number: None

PATIENT
  Age: 31 Year
  Sex: Female

DRUGS (10)
  1. CAPECITABINE [Suspect]
     Active Substance: CAPECITABINE
     Indication: Gastroenteropancreatic neuroendocrine tumour disease
     Dates: start: 2019, end: 2019
  2. PROPRANOLOL HYDROCHLORIDE [Suspect]
     Active Substance: PROPRANOLOL HYDROCHLORIDE
     Indication: Pain
     Dosage: DAILY DOSE: 20 MILLIGRAM
     Dates: start: 2019
  3. NALOXONE [Suspect]
     Active Substance: NALOXONE
     Dosage: DAILY DOSE: 40 MILLIGRAM
  4. OXYCODONE [Suspect]
     Active Substance: OXYCODONE\OXYCODONE HYDROCHLORIDE
     Indication: Pain
     Dosage: DAILY DOSE: 20 MILLIGRAM
     Dates: start: 2019
  5. OXYCODONE [Suspect]
     Active Substance: OXYCODONE\OXYCODONE HYDROCHLORIDE
     Indication: Pain
     Dosage: DAILY DOSE: 10 MILLIGRAM
     Dates: start: 2020
  6. OXYCODONE [Suspect]
     Active Substance: OXYCODONE\OXYCODONE HYDROCHLORIDE
     Indication: Pain
  7. DROTAVERINE [Suspect]
     Active Substance: DROTAVERINE
     Indication: Product used for unknown indication
     Dosage: DAILY DOSE: 40 MILLIGRAM
     Dates: start: 2019
  8. TEMOZOLOMIDE [Suspect]
     Active Substance: TEMOZOLOMIDE
     Indication: Gastroenteropancreatic neuroendocrine tumour disease
     Dates: start: 2019, end: 2019
  9. LEVOTHYROXINE [Concomitant]
     Active Substance: LEVOTHYROXINE\LEVOTHYROXINE SODIUM
     Indication: Thyroid therapy
     Dosage: DAILY DOSE: 75 MICROGRAM
  10. ACETAMINOPHEN\TRAMADOL [Concomitant]
     Active Substance: ACETAMINOPHEN\TRAMADOL
     Indication: Pain
     Dosage: UNK (37.5MG+325MG)

REACTIONS (12)
  - Drug ineffective [Fatal]
  - Malignant neoplasm progression [Fatal]
  - Epilepsy [Unknown]
  - Constipation [Unknown]
  - Dry mouth [Unknown]
  - Abdominal pain [Unknown]
  - Asthenia [Unknown]
  - Impulse-control disorder [Unknown]
  - Loss of consciousness [Unknown]
  - Dysphoria [Unknown]
  - Anaemia [Unknown]
  - Pain [Unknown]

NARRATIVE: CASE EVENT DATE: 20190101
